FAERS Safety Report 16581082 (Version 2)
Quarter: 2019Q3

REPORT INFORMATION
  Report Type: Spontaneous
  Country: RU (occurrence: RU)
  Receive Date: 20190716
  Receipt Date: 20190730
  Transmission Date: 20191004
  Serious: Yes (Hospitalization, Other)
  Sender: FDA-Public Use
  Company Number: PHHY2019RU147833

PATIENT
  Age: 20 Year
  Sex: Male

DRUGS (3)
  1. SANDIMMUN NEORAL [Suspect]
     Active Substance: CYCLOSPORINE
     Indication: BONE MARROW TRANSPLANT
     Dosage: 50 MG, QD (ONCE IN THE MORNING)
     Route: 048
     Dates: start: 20190528, end: 20190603
  2. ACELBIA [Concomitant]
     Indication: PRODUCT USED FOR UNKNOWN INDICATION
     Dosage: (ADMINISTERED TWICE)
     Route: 065
  3. SANDIMMUN NEORAL [Suspect]
     Active Substance: CYCLOSPORINE
     Dosage: 25 MG, QD (ONE IN THE MORNING)
     Route: 048
     Dates: start: 20190603

REACTIONS (12)
  - Loss of consciousness [Recovering/Resolving]
  - Disorientation [Recovering/Resolving]
  - Fatigue [Recovering/Resolving]
  - Body temperature increased [Recovering/Resolving]
  - Visual impairment [Recovering/Resolving]
  - Nausea [Recovering/Resolving]
  - Pneumonia [Unknown]
  - Thrombocytopenia [Recovering/Resolving]
  - Anal incontinence [Recovering/Resolving]
  - Vomiting [Recovering/Resolving]
  - Diarrhoea [Recovering/Resolving]
  - Tremor [Recovering/Resolving]

NARRATIVE: CASE EVENT DATE: 20190602
